FAERS Safety Report 6805256-3 (Version None)
Quarter: 2010Q2

REPORT INFORMATION
  Report Type: 
  Country: None (occurrence: None)
  Receive Date: 20100628
  Receipt Date: 20080902
  Transmission Date: 20101027
  Serious: No
  Sender: FDA-Public Use
  Company Number: US-PFIZER INC-2007083856

PATIENT
  Age: 25 Year
  Sex: Female

DRUGS (3)
  1. GEODON [Suspect]
     Indication: PSYCHOTIC DISORDER
  2. TRILAFON [Concomitant]
  3. ORAL CONTRACEPTIVE NOS [Concomitant]

REACTIONS (2)
  - DRUG ADMINISTRATION ERROR [None]
  - HYPERPROLACTINAEMIA [None]
